FAERS Safety Report 8839267 (Version 1)
Quarter: 2012Q4

REPORT INFORMATION
  Report Type: Spontaneous
  Country: US (occurrence: None)
  Receive Date: 20121012
  Receipt Date: 20121012
  Transmission Date: 20130627
  Serious: Yes (Other)
  Sender: FDA-Public Use
  Company Number: None

PATIENT
  Age: 54 Year
  Sex: Female
  Weight: 92.53 kg

DRUGS (4)
  1. MONTELUKAST [Suspect]
     Indication: ALLERGIC RHINITIS
     Dates: start: 20120920, end: 20121001
  2. MONTELUKAST [Suspect]
     Indication: CHRONIC URTICARIA
     Dates: start: 20120920, end: 20121001
  3. LAMOTRIGINE - LAMICTAL [Concomitant]
  4. VENLAFAXINE - EFFEXOR XR [Concomitant]

REACTIONS (3)
  - Mood altered [None]
  - Depression [None]
  - Suicidal ideation [None]
